FAERS Safety Report 4589562-1 (Version None)
Quarter: 2005Q1

REPORT INFORMATION
  Report Type: 
  Country: None (occurrence: None)
  Receive Date: 20050216
  Receipt Date: 20050203
  Transmission Date: 20050727
  Serious: Yes (Other)
  Sender: FDA-Public Use
  Company Number: 2005-00450

PATIENT
  Age: 25 Year
  Sex: Male

DRUGS (8)
  1. ISONIAZID [Suspect]
     Indication: TUBERCULOSIS
     Dosage: 200 MG, DAILY, ORAL
     Route: 048
  2. RIFAMPICIN [Concomitant]
  3. PYRAZINAMIDE [Concomitant]
  4. ETHAMBUTOL (ETHAMBUTOL) [Concomitant]
  5. PREDNISOLONE [Concomitant]
  6. CYCLOSPORINE [Concomitant]
  7. AZATHIOPRINE [Concomitant]
  8. LEVOFLOXACIN [Concomitant]

REACTIONS (1)
  - PANCREATITIS ACUTE [None]
